FAERS Safety Report 8379758-5 (Version None)
Quarter: 2012Q2

REPORT INFORMATION
  Report Type: 
  Country: None (occurrence: None)
  Receive Date: 20120523
  Receipt Date: 20120508
  Transmission Date: 20120825
  Serious: Yes (Other)
  Sender: FDA-Public Use
  Company Number: US-ENDO PHARMACEUTICALS INC.-OPIR20120074

PATIENT
  Age: 33 Year
  Sex: Male

DRUGS (2)
  1. OPANA [Suspect]
     Indication: DRUG DIVERSION
     Dosage: N/A
  2. HEROIN [Suspect]
     Indication: DRUG DIVERSION
     Dosage: N/A

REACTIONS (3)
  - DRUG DIVERSION [None]
  - PRESCRIPTION FORM TAMPERING [None]
  - INTENTIONAL DRUG MISUSE [None]
